FAERS Safety Report 6780350-4 (Version None)
Quarter: 2010Q2

REPORT INFORMATION
  Report Type: 
  Country: None (occurrence: None)
  Receive Date: 20100618
  Receipt Date: 20100608
  Transmission Date: 20101027
  Serious: Yes (Other)
  Sender: FDA-Public Use
  Company Number: US-WYE-H15578410

PATIENT
  Sex: Female
  Weight: 82.63 kg

DRUGS (13)
  1. PROTONIX [Suspect]
     Indication: GASTROOESOPHAGEAL REFLUX DISEASE
     Route: 048
     Dates: start: 20040101, end: 20090101
  2. PROTONIX [Suspect]
     Route: 048
     Dates: start: 20100501
  3. TOPROL-XL [Concomitant]
     Dosage: 25 MG, FREQUENCY UNKNOWN
  4. HYDROCHLOROTHIAZIDE [Concomitant]
     Dosage: 25 MG, FREQUENCY UNKNOWN
  5. ACETYLSALICYLIC ACID [Concomitant]
     Dosage: 81 MG, FREQUENCY UNKNOWN
  6. ALBUTEROL [Concomitant]
     Dosage: AS NEEDED
  7. ASCORBIC ACID/ERGOCALCIFEROL/FOLIC ACID/NICOTINAMIDE/PANTHENOL/RETINOL [Concomitant]
  8. GLUCOSAMINE [Concomitant]
  9. SUCRALFATE [Concomitant]
     Indication: GASTROOESOPHAGEAL REFLUX DISEASE
  10. PRAVASTATIN [Concomitant]
  11. SYMBICORT [Concomitant]
     Indication: ASTHMA
  12. REGLAN [Concomitant]
     Indication: GASTROOESOPHAGEAL REFLUX DISEASE
     Dosage: 10 MG, FREQUENCY UNKNOWN
  13. CALCIUM CARBONATE [Concomitant]

REACTIONS (1)
  - MYOCARDIAL INFARCTION [None]
